FAERS Safety Report 13434283 (Version 1)
Quarter: 2017Q2

REPORT INFORMATION
  Report Type: Report from Study
  Country: PT (occurrence: PT)
  Receive Date: 20170413
  Receipt Date: 20170413
  Transmission Date: 20170830
  Serious: Yes (Other)
  Sender: FDA-Public Use
  Company Number: PT-ROCHE-1914924

PATIENT
  Age: 81 Year

DRUGS (4)
  1. ZELBORAF [Suspect]
     Active Substance: VEMURAFENIB
     Dosage: RE-INTRODUCED AT 50% OF INITIAL DOSE
     Route: 065
     Dates: start: 20160530, end: 20160618
  2. COBIMETINIB [Suspect]
     Active Substance: COBIMETINIB
     Indication: MALIGNANT MELANOMA
     Route: 065
     Dates: start: 20160606, end: 20160618
  3. ZELBORAF [Suspect]
     Active Substance: VEMURAFENIB
     Dosage: RE-INTRODUCED AT 75% OF INITIAL DOSE
     Route: 065
     Dates: start: 20160502, end: 20160516
  4. ZELBORAF [Suspect]
     Active Substance: VEMURAFENIB
     Indication: MALIGNANT MELANOMA
     Route: 065
     Dates: start: 20160324, end: 20160411

REACTIONS (4)
  - Hyponatraemia [Unknown]
  - Asthenia [Unknown]
  - Skin toxicity [Unknown]
  - Skin toxicity [Unknown]

NARRATIVE: CASE EVENT DATE: 20160411
